FAERS Safety Report 7766583-9 (Version None)
Quarter: 2011Q3

REPORT INFORMATION
  Report Type: 
  Country: None (occurrence: None)
  Receive Date: 20110922
  Receipt Date: 20110909
  Transmission Date: 20111222
  Serious: Yes (Hospitalization, Disabling, Other)
  Sender: FDA-Public Use
  Company Number: US-RANBAXY-2011RR-46997

PATIENT
  Sex: Female

DRUGS (10)
  1. CIPROFLOXACIN [Suspect]
     Indication: SINUSITIS
     Dosage: 500 MG, UNK
     Route: 048
     Dates: start: 20060607
  2. METHYLPREDNISOLONE [Suspect]
     Indication: SINUSITIS
     Dosage: 4 MG, UNK
     Route: 065
     Dates: start: 20040430
  3. AVELOX [Suspect]
     Dosage: 400 MG, UNK
     Route: 048
     Dates: start: 20040913
  4. AVELOX [Suspect]
     Dosage: 400 MG, UNK
     Route: 048
     Dates: start: 20041201
  5. LEVAQUIN [Suspect]
     Dosage: 500 MG, QD
     Route: 048
     Dates: start: 20051230
  6. LEVAQUIN [Suspect]
     Indication: SINUSITIS
     Dosage: 500 MG, QD
     Route: 048
     Dates: start: 20040106
  7. LEVAQUIN [Suspect]
     Dosage: 750 MG, UNK
     Route: 065
     Dates: start: 20090109
  8. AVELOX [Suspect]
     Indication: SINUSITIS
     Dosage: 400 MG, UNK
     Route: 048
     Dates: start: 20040427
  9. LEVAQUIN [Suspect]
     Dosage: 500 MG, QD
     Route: 048
     Dates: start: 20060822
  10. LEVAQUIN [Suspect]
     Dosage: 500 MG, QD
     Route: 048
     Dates: start: 20080227

REACTIONS (1)
  - ROTATOR CUFF SYNDROME [None]
